FAERS Safety Report 18626368 (Version 1)
Quarter: 2020Q4

REPORT INFORMATION
  Report Type: Spontaneous
  Country: JP (occurrence: JP)
  Receive Date: 20201217
  Receipt Date: 20201217
  Transmission Date: 20210114
  Serious: Yes (Other)
  Sender: FDA-Public Use
  Company Number: JP-UCBSA-2020051837

PATIENT
  Sex: Male

DRUGS (2)
  1. E KEPPRA [Suspect]
     Active Substance: LEVETIRACETAM
     Indication: PRODUCT USED FOR UNKNOWN INDICATION
     Dosage: 1500 MILLIGRAM, 2X/DAY (BID)
     Route: 048
  2. DEPAKENE-R [Concomitant]
     Active Substance: VALPROATE SODIUM
     Indication: PRODUCT USED FOR UNKNOWN INDICATION
     Dosage: 200 MG A DAY
     Route: 048

REACTIONS (6)
  - Stomatitis [Unknown]
  - Rhinorrhoea [Unknown]
  - Seizure [Unknown]
  - Loss of consciousness [Unknown]
  - Sneezing [Unknown]
  - Rhinitis [Unknown]
